FAERS Safety Report 24151738 (Version 7)
Quarter: 2024Q4

REPORT INFORMATION
  Report Type: Report from Study
  Country: US (occurrence: US)
  Receive Date: 20240730
  Receipt Date: 20241128
  Transmission Date: 20250115
  Serious: Yes (Hospitalization, Other)
  Sender: NOVARTIS
  Company Number: US-002147023-NVSC2024US001919

PATIENT
  Sex: Male

DRUGS (19)
  1. KESIMPTA [Suspect]
     Active Substance: OFATUMUMAB
     Indication: Relapsing-remitting multiple sclerosis
     Dosage: 20 MG, QMO (INJECTED 20 MG (1 INJECTOR) MONTHLY STARTING AT WEEK 4 AS DIRECTED), FIRST DOSE
     Route: 058
  2. KESIMPTA [Suspect]
     Active Substance: OFATUMUMAB
     Indication: Relapsing multiple sclerosis
     Dosage: UNK (SECOND DOSE)
     Route: 058
  3. KESIMPTA [Suspect]
     Active Substance: OFATUMUMAB
     Dosage: 20 MG, QMO
     Route: 058
  4. SEROQUEL XR [Concomitant]
     Active Substance: QUETIAPINE FUMARATE
     Indication: Product used for unknown indication
     Dosage: UNK
     Route: 065
  5. NUVIGIL [Concomitant]
     Active Substance: ARMODAFINIL
     Indication: Product used for unknown indication
     Dosage: 150 MG, QD, (IN MORNING) 30 QUANTITY
     Route: 065
     Dates: end: 20231212
  6. NUVIGIL [Concomitant]
     Active Substance: ARMODAFINIL
     Dosage: 150 MG, QD (IN MORNING) 30 QUANTITY
     Route: 065
     Dates: end: 20240608
  7. VIMPAT [Concomitant]
     Active Substance: LACOSAMIDE
     Indication: Product used for unknown indication
     Dosage: UNK
     Route: 065
  8. BACLOFEN [Concomitant]
     Active Substance: BACLOFEN
     Indication: Product used for unknown indication
     Dosage: 20 MG, PRN (3 TIMES A DAY)/ 90 QUANTITY
     Route: 065
     Dates: end: 20231222
  9. METOPROLOL SUCCINATE [Concomitant]
     Active Substance: METOPROLOL SUCCINATE
     Indication: Product used for unknown indication
     Dosage: 50 MG, QD (1 TAB DAILY)
     Route: 065
     Dates: end: 20231212
  10. ARMODAFINIL [Concomitant]
     Active Substance: ARMODAFINIL
     Indication: Product used for unknown indication
     Dosage: 150 MG, QD
     Route: 048
  11. DALFAMPRIDINE [Concomitant]
     Active Substance: DALFAMPRIDINE
     Indication: Product used for unknown indication
     Dosage: 10 MG, Q12H
     Route: 048
  12. DEXEDRINE [Concomitant]
     Active Substance: DEXTROAMPHETAMINE SULFATE
     Indication: Product used for unknown indication
     Dosage: 10 MG, QD (ONE TABLET PO BID) 60 QUANTITY
     Route: 048
     Dates: end: 20240609
  13. DEXEDRINE [Concomitant]
     Active Substance: DEXTROAMPHETAMINE SULFATE
     Dosage: 10 MG, BID (ONE TABLET PO BID) 60 QUANTITY
     Route: 048
     Dates: end: 20240709
  14. LOSARTAN [Concomitant]
     Active Substance: LOSARTAN
     Indication: Product used for unknown indication
     Dosage: 50 MG, QD
     Route: 048
     Dates: end: 20240410
  15. THIAMINE [Concomitant]
     Active Substance: THIAMINE
     Indication: Product used for unknown indication
     Dosage: 100 MG, QD
     Route: 048
  16. ULTRAM [Concomitant]
     Active Substance: TRAMADOL HYDROCHLORIDE
     Indication: Product used for unknown indication
     Dosage: UNK
     Route: 065
  17. BUPRENORPHINE [Concomitant]
     Active Substance: BUPRENORPHINE
     Indication: Product used for unknown indication
     Dosage: UNK
     Route: 065
  18. MACROBID [Concomitant]
     Active Substance: NITROFURANTOIN\NITROFURANTOIN MONOHYDRATE
     Indication: Product used for unknown indication
     Dosage: 100 MG, BID
     Route: 065
     Dates: end: 20240410
  19. PREDNISONE [Concomitant]
     Active Substance: PREDNISONE
     Indication: Product used for unknown indication
     Dosage: 20 MG, TAKE 3 PO CD X 5D THEN 2 PO OD X SD THEN 1 PO, 32 QUANTITY
     Route: 048
     Dates: end: 20240515

REACTIONS (21)
  - Appendicitis perforated [Unknown]
  - Dehydration [Unknown]
  - Thrombosis [Unknown]
  - Syncope [Unknown]
  - Pleural effusion [Unknown]
  - Pneumothorax [Unknown]
  - Pyrexia [Unknown]
  - Feeling abnormal [Unknown]
  - COVID-19 [Unknown]
  - Ear infection [Unknown]
  - Blood pressure increased [Unknown]
  - Weight decreased [Unknown]
  - Arthropod sting [Unknown]
  - Spinal disorder [Unknown]
  - Neuralgia [Unknown]
  - Influenza [Unknown]
  - Paraesthesia [Not Recovered/Not Resolved]
  - Asthenia [Unknown]
  - Fatigue [Not Recovered/Not Resolved]
  - Dyspnoea [Unknown]
  - Drug ineffective [Unknown]
